FAERS Safety Report 8837164 (Version 2)
Quarter: 2012Q4

REPORT INFORMATION
  Report Type: Report from Study
  Country: US (occurrence: US)
  Receive Date: 20121011
  Receipt Date: 20121129
  Transmission Date: 20130627
  Serious: Yes (Hospitalization)
  Sender: FDA-Public Use
  Company Number: US-ROCHE-1140313

PATIENT
  Age: 67 Year
  Sex: Male

DRUGS (12)
  1. BEVACIZUMAB [Suspect]
     Indication: GLIOBLASTOMA MULTIFORME
     Route: 042
     Dates: start: 20111128, end: 20120911
  2. PANOBINOSTAT [Suspect]
     Indication: GLIOBLASTOMA MULTIFORME
     Route: 048
     Dates: start: 20111128, end: 20120915
  3. KEPPRA [Concomitant]
     Route: 065
  4. LISINOPRIL [Concomitant]
     Route: 065
  5. RANITIDINE [Concomitant]
     Route: 065
  6. SYNTHROID [Concomitant]
     Route: 065
  7. LIPITOR [Concomitant]
     Route: 065
  8. ATENOLOL [Concomitant]
     Route: 065
  9. SERTRALINE [Concomitant]
     Route: 065
  10. NACL [Concomitant]
     Route: 065
  11. ASPIRIN [Concomitant]
     Route: 065
  12. OLANZAPINE [Concomitant]
     Dosage: Increase to 20 mg at night from 27/Sep/2012
     Route: 065

REACTIONS (1)
  - Delirium [Unknown]
